FAERS Safety Report 20346184 (Version 2)
Quarter: 2022Q1

REPORT INFORMATION
  Report Type: Report from Study
  Country: US (occurrence: None)
  Receive Date: 20220118
  Receipt Date: 20220127
  Transmission Date: 20220423
  Serious: Yes (Other)
  Sender: FDA-Public Use
  Company Number: US-Merck Healthcare KGaA-9290465

PATIENT
  Age: 41 Year
  Sex: Female

DRUGS (1)
  1. MAVENCLAD [Suspect]
     Active Substance: CLADRIBINE
     Indication: Multiple sclerosis
     Dosage: YEAR ONE MONTH ONE THERAPY
     Route: 048
     Dates: start: 20211226, end: 20211230

REACTIONS (25)
  - Facial pain [Not Recovered/Not Resolved]
  - Eye pain [Not Recovered/Not Resolved]
  - Swelling face [Unknown]
  - Blindness unilateral [Not Recovered/Not Resolved]
  - Lhermitte^s sign [Not Recovered/Not Resolved]
  - Vision blurred [Not Recovered/Not Resolved]
  - Multiple sclerosis relapse [Unknown]
  - Herpes zoster [Unknown]
  - White blood cell count decreased [Unknown]
  - Sensory disturbance [Unknown]
  - Musculoskeletal stiffness [Unknown]
  - Feeling abnormal [Unknown]
  - Fatigue [Unknown]
  - Nausea [Recovering/Resolving]
  - Feeling cold [Unknown]
  - Headache [Unknown]
  - Cough [Unknown]
  - Allergic cough [Unknown]
  - Upper-airway cough syndrome [Unknown]
  - Chapped lips [Unknown]
  - Stomatitis [Unknown]
  - Pain [Not Recovered/Not Resolved]
  - Rash papular [Recovering/Resolving]
  - Pruritus [Unknown]
  - Dry skin [Unknown]

NARRATIVE: CASE EVENT DATE: 20211201
